FAERS Safety Report 11915870 (Version 1)
Quarter: 2016Q1

REPORT INFORMATION
  Report Type: Spontaneous
  Country: US (occurrence: None)
  Receive Date: 20160113
  Receipt Date: 20160113
  Transmission Date: 20160526
  Serious: No
  Sender: FDA-Public Use
  Company Number: None

PATIENT
  Age: 42 Year
  Sex: Female

DRUGS (4)
  1. OXYCODONE/ACETAMINOPHEN 5/325 MG [Suspect]
     Active Substance: ACETAMINOPHEN\OXYCODONE HYDROCHLORIDE
     Indication: PAIN
     Route: 048
     Dates: start: 20151211, end: 20151222
  2. OXYCODONE/ACETAMINOPHEN 5/325 MG [Suspect]
     Active Substance: ACETAMINOPHEN\OXYCODONE HYDROCHLORIDE
     Indication: HYSTERECTOMY
     Route: 048
     Dates: start: 20151211, end: 20151222
  3. DICLFENAC [Concomitant]
  4. LAXATIVE [Concomitant]
     Active Substance: UNSPECIFIED INGREDIENT

REACTIONS (11)
  - Chromaturia [None]
  - Affective disorder [None]
  - Irritability [None]
  - Fatigue [None]
  - Pruritus [None]
  - Vomiting [None]
  - Insomnia [None]
  - Nausea [None]
  - Decreased appetite [None]
  - Hyperhidrosis [None]
  - Abdominal pain upper [None]

NARRATIVE: CASE EVENT DATE: 20151211
